FAERS Safety Report 17471810 (Version 2)
Quarter: 2020Q2

REPORT INFORMATION
  Report Type: Spontaneous
  Country: JP (occurrence: JP)
  Receive Date: 20200228
  Receipt Date: 20200617
  Transmission Date: 20200713
  Serious: Yes (Hospitalization, Other)
  Sender: FDA-Public Use
  Company Number: JP-GLAXOSMITHKLINE-JP2020034631

PATIENT
  Age: 27 Year
  Sex: Male

DRUGS (3)
  1. CLEAMINE A [Concomitant]
     Active Substance: CAFFEINE\ERGOTAMINE TARTRATE\PROPYPHENAZONE
     Indication: NAUSEA
     Dosage: UNK
     Route: 048
     Dates: start: 20180429, end: 20180429
  2. NAUZELIN [Concomitant]
     Active Substance: DOMPERIDONE
     Indication: NAUSEA
     Dosage: UNK
     Route: 048
     Dates: start: 20180429, end: 20180429
  3. VOLTAREN [Suspect]
     Active Substance: DICLOFENAC SODIUM
     Indication: ABDOMINAL PAIN
     Dosage: UNK
     Route: 048
     Dates: start: 20180429, end: 20180429

REACTIONS (1)
  - Acute kidney injury [Unknown]

NARRATIVE: CASE EVENT DATE: 20180429
